FAERS Safety Report 13761982 (Version 1)
Quarter: 2017Q3

REPORT INFORMATION
  Report Type: Spontaneous
  Country: US (occurrence: US)
  Receive Date: 20170717
  Receipt Date: 20170717
  Transmission Date: 20171127
  Serious: No
  Sender: FDA-Public Use
  Company Number: None

PATIENT
  Age: 58 Year
  Sex: Male

DRUGS (1)
  1. TALTZ [Suspect]
     Active Substance: IXEKIZUMAB

REACTIONS (7)
  - Injection site erythema [None]
  - Injection site warmth [None]
  - Injection site rash [None]
  - Impaired work ability [None]
  - Gait inability [None]
  - Injection site reaction [None]
  - Injection site swelling [None]

NARRATIVE: CASE EVENT DATE: 20170717
